FAERS Safety Report 17004002 (Version 1)
Quarter: 2019Q4

REPORT INFORMATION
  Report Type: Spontaneous
  Country: US (occurrence: US)
  Receive Date: 20191107
  Receipt Date: 20191107
  Transmission Date: 20200122
  Serious: Yes (Hospitalization, Other)
  Sender: FDA-Public Use
  Company Number: US-SA-2019SA302008

PATIENT
  Age: 69 Year
  Sex: Male

DRUGS (2)
  1. BCG FOR IMMUNOTHERAPY [Suspect]
     Active Substance: BACILLUS CALMETTE-GUERIN ANTIGEN, UNSPECIFIED SUBSTRAIN
     Indication: BLADDER CANCER
     Dosage: UNK
  2. BCG FOR IMMUNOTHERAPY [Suspect]
     Active Substance: BACILLUS CALMETTE-GUERIN ANTIGEN, UNSPECIFIED SUBSTRAIN
     Dosage: UNK

REACTIONS (10)
  - Disseminated Bacillus Calmette-Guerin infection [Unknown]
  - Pyelonephritis [Recovering/Resolving]
  - Suprapubic pain [Unknown]
  - Abdominal pain lower [Unknown]
  - Pyrexia [Recovered/Resolved]
  - Retinal vasculitis [Unknown]
  - Urinary retention [Recovered/Resolved]
  - Chorioretinal disorder [Unknown]
  - Chills [Unknown]
  - Night sweats [Unknown]
